FAERS Safety Report 6573611-5 (Version None)
Quarter: 2010Q1

REPORT INFORMATION
  Report Type: 
  Country: None (occurrence: None)
  Receive Date: 20100208
  Receipt Date: 20100127
  Transmission Date: 20100710
  Serious: Yes (Other)
  Sender: FDA-Public Use
  Company Number: FR-ROCHE-682442

PATIENT
  Sex: Female
  Weight: 56 kg

DRUGS (7)
  1. BLINDED TOCILIZUMAB [Suspect]
     Indication: RHEUMATOID ARTHRITIS
     Dosage: PERMANENTLY DISCONTINUED ;LAST DOSE PRIOR TO SAE: 28 DEC 2009
     Route: 042
     Dates: start: 20091127, end: 20100125
  2. METHOTREXATE [Suspect]
     Indication: RHEUMATOID ARTHRITIS
     Dosage: TEMPORARILY INTERRUPTED
     Route: 058
     Dates: start: 20090812, end: 20100125
  3. SPIRAMYCINE [Concomitant]
     Indication: RHEUMATOID ARTHRITIS
     Dosage: PERMANENTLY DISCONTINUED, DOSE: 750000 UI
     Route: 048
     Dates: start: 20100106
  4. METRONIDAZOLE [Concomitant]
     Indication: RHEUMATOID ARTHRITIS
     Dosage: TEMPORARILY INTERRUPTED
     Route: 048
     Dates: start: 20100106
  5. FOLIC ACID [Concomitant]
     Dates: start: 20090712
  6. PREDNISONE [Concomitant]
     Dates: start: 20090626
  7. DESOGESTREL [Concomitant]
     Dates: start: 20090701

REACTIONS (1)
  - HEPATITIS [None]
